FAERS Safety Report 15309911 (Version 1)
Quarter: 2018Q3

REPORT INFORMATION
  Report Type: Spontaneous
  Country: GB (occurrence: GB)
  Receive Date: 20180813
  Receipt Date: 20180813
  Transmission Date: 20181010
  Serious: Yes (Disabling, Other)
  Sender: FDA-Public Use
  Company Number: None

PATIENT
  Age: 55 Year
  Sex: Female
  Weight: 96.2 kg

DRUGS (9)
  1. SYMBICORT [Concomitant]
     Active Substance: BUDESONIDE\FORMOTEROL FUMARATE DIHYDRATE
  2. LEVOTHYROXINE. [Concomitant]
     Active Substance: LEVOTHYROXINE
  3. EKLIRA GENUIAR GSN SPRAY [Concomitant]
  4. ZAPAIN [Concomitant]
     Active Substance: ACETAMINOPHEN\CODEINE PHOSPHATE
  5. PREGABALIN. [Concomitant]
     Active Substance: PREGABALIN
  6. MAXITROL [Suspect]
     Active Substance: DEXAMETHASONE\NEOMYCIN SULFATE\POLYMYXIN B SULFATE
     Indication: EYE INFECTION
     Dosage: ?          QUANTITY:1 EACH EYE;?
     Route: 047
     Dates: start: 20180808, end: 20180810
  7. PRAMPINEXOLE [Concomitant]
  8. FEXOFENIDINE [Concomitant]
  9. RAMIPRIL. [Concomitant]
     Active Substance: RAMIPRIL

REACTIONS (5)
  - Eye pain [None]
  - Emotional poverty [None]
  - Decreased appetite [None]
  - Instillation site pain [None]
  - Apathy [None]

NARRATIVE: CASE EVENT DATE: 20180809
